FAERS Safety Report 18308437 (Version 3)
Quarter: 2020Q4

REPORT INFORMATION
  Report Type: Report from Study
  Country: CA (occurrence: CA)
  Receive Date: 20200924
  Receipt Date: 20201229
  Transmission Date: 20210113
  Serious: Yes (Other)
  Sender: FDA-Public Use
  Company Number: CA-TAKEDA-2020TUS040004

PATIENT
  Age: 36 Year
  Sex: Female

DRUGS (3)
  1. SALOFALK [AMINOSALICYLIC ACID] [Concomitant]
     Active Substance: AMINOSALICYLIC ACID
     Dosage: UNK
     Dates: start: 2005
  2. VEDOLIZUMAB [Suspect]
     Active Substance: VEDOLIZUMAB
     Indication: COLITIS ULCERATIVE
     Dosage: 300 MILLIGRAM
     Route: 042
     Dates: start: 20170204
  3. VEDOLIZUMAB [Suspect]
     Active Substance: VEDOLIZUMAB
     Dosage: 300 MILLIGRAM, Q6WEEKS
     Route: 042
     Dates: start: 20171103

REACTIONS (3)
  - Off label use [Unknown]
  - Abortion spontaneous [Recovered/Resolved with Sequelae]
  - Pregnancy [Recovered/Resolved]

NARRATIVE: CASE EVENT DATE: 20171103
